FAERS Safety Report 4976489-6 (Version None)
Quarter: 2006Q2

REPORT INFORMATION
  Report Type: 
  Country: None (occurrence: None)
  Receive Date: 20060412
  Receipt Date: 20060404
  Transmission Date: 20061013
  Serious: Yes (Other)
  Sender: FDA-Public Use
  Company Number: 2006047422

PATIENT
  Age: 29 Year
  Sex: Female
  Weight: 63.5036 kg

DRUGS (1)
  1. DEPO-PROVERA [Suspect]
     Indication: PELVIC PAIN
     Dosage: 150 MG (150 MG, SINGLE INJECTION)
     Dates: start: 20050929, end: 20050929

REACTIONS (9)
  - ABDOMINAL DISTENSION [None]
  - DEPRESSION [None]
  - HYPOMENORRHOEA [None]
  - MENORRHAGIA [None]
  - OLIGOMENORRHOEA [None]
  - PNEUMONIA [None]
  - STILLBIRTH [None]
  - TREATMENT NONCOMPLIANCE [None]
  - WEIGHT DECREASED [None]
